FAERS Safety Report 25933418 (Version 2)
Quarter: 2025Q4

REPORT INFORMATION
  Report Type: Report from Study
  Country: US (occurrence: US)
  Receive Date: 20251017
  Receipt Date: 20251114
  Transmission Date: 20260117
  Serious: Yes (Other)
  Sender: ABBVIE
  Company Number: US-ABBVIE-6504553

PATIENT
  Age: 56 Year
  Sex: Female

DRUGS (1)
  1. SKYRIZI [Suspect]
     Active Substance: RISANKIZUMAB-RZAA
     Indication: Colitis ulcerative
     Route: 058
     Dates: start: 20250416

REACTIONS (7)
  - Knee operation [Recovering/Resolving]
  - Joint swelling [Recovering/Resolving]
  - Drug ineffective [Unknown]
  - Haemorrhoids [Unknown]
  - Injection site swelling [Recovering/Resolving]
  - Colitis ulcerative [Unknown]
  - Haemorrhage [Not Recovered/Not Resolved]

NARRATIVE: CASE EVENT DATE: 20250101
